FAERS Safety Report 7532501-1 (Version None)
Quarter: 2011Q2

REPORT INFORMATION
  Report Type: 
  Country: None (occurrence: None)
  Receive Date: 20110608
  Receipt Date: 20110526
  Transmission Date: 20111010
  Serious: Yes (Hospitalization)
  Sender: FDA-Public Use
  Company Number: PHHY2010NL20469

PATIENT
  Sex: Male
  Weight: 85 kg

DRUGS (3)
  1. DIOVAN [Suspect]
     Dosage: 160 MG, QD
     Route: 048
  2. DICLOFENAC SODIUM [Concomitant]
  3. DIPIPERON [Concomitant]

REACTIONS (6)
  - INJURY [None]
  - WOUND [None]
  - WOUND HAEMORRHAGE [None]
  - ACCIDENT [None]
  - WEIGHT INCREASED [None]
  - LOSS OF CONSCIOUSNESS [None]
